FAERS Safety Report 5211119-X (Version None)
Quarter: 2006Q4

REPORT INFORMATION
  Report Type: 
  Country: None (occurrence: None)
  Receive Date: 20061130
  Receipt Date: 20060613
  Transmission Date: 20070319
  Serious: Yes (Other)
  Sender: FDA-Public Use
  Company Number: WAES 0503USA03356

PATIENT
  Age: 77 Year
  Sex: Female
  Weight: 49.8957 kg

DRUGS (6)
  1. FOSAMAX [Suspect]
     Indication: OSTEOPENIA
     Dosage: 70 MG WKY PO
     Route: 048
     Dates: start: 20030301
  2. METROGEL [Concomitant]
  3. PREMARIN [Concomitant]
  4. ASPIRIN [Concomitant]
  5. CALCIUM (UNSPECIFIED)+ VITAMI [Concomitant]
  6. METOPROLOL TARTRATE [Concomitant]

REACTIONS (5)
  - BLOOD GLUCOSE INCREASED [None]
  - CATARACT [None]
  - DIVERTICULUM [None]
  - HAEMORRHOIDS [None]
  - OSTEONECROSIS [None]
